FAERS Safety Report 15376450 (Version 3)
Quarter: 2019Q2

REPORT INFORMATION
  Report Type: Spontaneous
  Country: PL (occurrence: PL)
  Receive Date: 20180912
  Receipt Date: 20190515
  Transmission Date: 20190711
  Serious: Yes (Death, Other)
  Sender: FDA-Public Use
  Company Number: PL-B.I. PHARMACEUTICALS,INC./RIDGEFIELD-2018-BI-045339

PATIENT
  Age: 65 Year
  Sex: Male
  Weight: 95 kg

DRUGS (2)
  1. VARGATEF [Suspect]
     Active Substance: NINTEDANIB
     Indication: LUNG NEOPLASM MALIGNANT
     Route: 048
     Dates: start: 20180727, end: 201808
  2. DOCETAXEL. [Suspect]
     Active Substance: DOCETAXEL
     Indication: LUNG NEOPLASM MALIGNANT
     Route: 042
     Dates: start: 20180727, end: 20180727

REACTIONS (2)
  - Death [Fatal]
  - Febrile neutropenia [Unknown]

NARRATIVE: CASE EVENT DATE: 201808
